FAERS Safety Report 8214991-4 (Version None)
Quarter: 2012Q1

REPORT INFORMATION
  Report Type: 
  Country: None (occurrence: None)
  Receive Date: 20120313
  Receipt Date: 20120302
  Transmission Date: 20120608
  Serious: Yes (Other)
  Sender: FDA-Public Use
  Company Number: 2012-1159

PATIENT
  Age: 58 Year
  Sex: Female

DRUGS (8)
  1. ULORIC [Concomitant]
  2. CRESTOR [Concomitant]
  3. SOMATULINE DEPOT [Suspect]
     Indication: ACROMEGALY
     Dosage: 60 MG (60 MG, 1 IN 28 D),SUBCUTANEOUS
     Route: 058
     Dates: start: 20110510
  4. FUROSEMIDE (FUROSEMIDE) [Concomitant]
  5. CALCITRIOL [Concomitant]
  6. FERROUS SULFATE TAB [Concomitant]
  7. METOPROLOL TARTRATE [Concomitant]
  8. SENSIPAR [Concomitant]

REACTIONS (10)
  - INFLUENZA LIKE ILLNESS [None]
  - BLOOD GLUCOSE DECREASED [None]
  - CONSTIPATION [None]
  - BONE DISORDER [None]
  - WEIGHT INCREASED [None]
  - RENAL NEOPLASM [None]
  - PAIN IN EXTREMITY [None]
  - NAUSEA [None]
  - JOINT EFFUSION [None]
  - VOMITING [None]
